FAERS Safety Report 18607617 (Version 2)
Quarter: 2021Q1

REPORT INFORMATION
  Report Type: Report from Study
  Country: US (occurrence: US)
  Receive Date: 20201211
  Receipt Date: 20210128
  Transmission Date: 20210419
  Serious: Yes (Other)
  Sender: FDA-Public Use
  Company Number: US-JAZZ-2020-US-016589

PATIENT
  Sex: Female

DRUGS (5)
  1. XYREM [Suspect]
     Active Substance: SODIUM OXYBATE
     Dosage: 4 GRAM, BID
     Route: 048
     Dates: start: 202008, end: 202012
  2. NUCYNTA [Concomitant]
     Active Substance: TAPENTADOL HYDROCHLORIDE
  3. XYREM [Suspect]
     Active Substance: SODIUM OXYBATE
     Indication: NARCOLEPSY
     Dosage: 1.5 GRAM, BID
     Route: 048
     Dates: start: 202003, end: 202004
  4. XYREM [Suspect]
     Active Substance: SODIUM OXYBATE
     Indication: CATAPLEXY
     Dosage: DOSE ADJUSTMENT
     Route: 048
     Dates: start: 202004, end: 202008
  5. XYREM [Suspect]
     Active Substance: SODIUM OXYBATE
     Dosage: UNK
     Route: 048
     Dates: start: 202012

REACTIONS (1)
  - Supraventricular tachycardia [Recovering/Resolving]

NARRATIVE: CASE EVENT DATE: 2020
